FAERS Safety Report 5099181-9 (Version None)
Quarter: 2006Q3

REPORT INFORMATION
  Report Type: 
  Country: None (occurrence: None)
  Receive Date: 20060728
  Receipt Date: 20060531
  Transmission Date: 20061208
  Serious: No
  Sender: FDA-Public Use
  Company Number: COT_0552_2006

PATIENT
  Age: 57 Year
  Sex: Male
  Weight: 71.7 kg

DRUGS (7)
  1. VENTAVIS [Suspect]
     Indication: PULMONARY HYPERTENSION
     Dosage: 5 MCG 5 TO 6X/DAY IH
     Route: 055
     Dates: start: 20060504
  2. TRACLEER [Concomitant]
  3. LASIX [Concomitant]
  4. NORVASC [Concomitant]
  5. K-DUR 10 [Concomitant]
  6. CALCIUM GLUCONATE [Concomitant]
  7. PROTONIX [Concomitant]

REACTIONS (2)
  - DRY THROAT [None]
  - ORAL DISCOMFORT [None]
